FAERS Safety Report 17813539 (Version 1)
Quarter: 2020Q2

REPORT INFORMATION
  Report Type: Report from Study
  Country: BR (occurrence: BR)
  Receive Date: 20200521
  Receipt Date: 20200521
  Transmission Date: 20200714
  Serious: Yes (Death, Hospitalization)
  Sender: FDA-Public Use
  Company Number: BR-JNJFOC-20200517330

PATIENT
  Sex: Male
  Weight: 68 kg

DRUGS (2)
  1. ACITRETIN. [Concomitant]
     Active Substance: ACITRETIN
  2. STELARA [Suspect]
     Active Substance: USTEKINUMAB
     Indication: PSORIASIS
     Route: 058
     Dates: end: 20200312

REACTIONS (3)
  - Psoriasis [Fatal]
  - Asthma [Fatal]
  - Pneumonia [Fatal]
